FAERS Safety Report 4432535-X (Version None)
Quarter: 2004Q3

REPORT INFORMATION
  Report Type: 
  Country: None (occurrence: None)
  Receive Date: 20040825
  Receipt Date: 20040813
  Transmission Date: 20050211
  Serious: Yes (Other)
  Sender: FDA-Public Use
  Company Number: PHBS2004FR10654

PATIENT
  Age: 58 Year
  Sex: Female

DRUGS (4)
  1. MIKELAN#OT (NVO) [Suspect]
  2. KETOPROFEN [Suspect]
  3. DIAMOX [Suspect]
  4. INDOCOLLYRE [Suspect]

REACTIONS (1)
  - DERMATITIS EXFOLIATIVE [None]
